FAERS Safety Report 6257982-5 (Version None)
Quarter: 2009Q3

REPORT INFORMATION
  Report Type: 
  Country: None (occurrence: None)
  Receive Date: 20090702
  Receipt Date: 20090626
  Transmission Date: 20100115
  Serious: Yes (Life-Threatening)
  Sender: FDA-Public Use
  Company Number: DSJ-2009-08294

PATIENT
  Age: 81 Year
  Sex: Male
  Weight: 51.5 kg

DRUGS (7)
  1. OLMESARTAN MEDOXOMIL [Suspect]
     Indication: ESSENTIAL HYPERTENSION
     Dosage: 20 MG (20 MG, 1 IN 1 D), PER ORAL
     Route: 048
     Dates: start: 20051125
  2. MICARDIS [Concomitant]
  3. SELECTOL (CELIPROLOL HYDROCHLORIDE) [Concomitant]
  4. AMLODIPINE BESYLATE [Concomitant]
  5. TRICHLORMETHIAZIDE [Concomitant]
  6. ATELEC (CILNIDIPINE) [Concomitant]
  7. DETANTOL R (BUNAZOSIN HYDROCHLORIDE) (BUNAZOSIN HYDROCHLORIDE) [Concomitant]

REACTIONS (1)
  - MYOCARDIAL INFARCTION [None]
